FAERS Safety Report 9596966 (Version 1)
Quarter: 2013Q4

REPORT INFORMATION
  Report Type: Spontaneous
  Country: IT (occurrence: IT)
  Receive Date: 20131004
  Receipt Date: 20131004
  Transmission Date: 20140711
  Serious: Yes (Other)
  Sender: FDA-Public Use
  Company Number: IT-TEVA-434276ISR

PATIENT
  Age: 58 Year
  Sex: Female

DRUGS (7)
  1. ETOPOSIDE TEVA [Suspect]
     Indication: SMALL CELL LUNG CANCER
     Dosage: 130 MG CYCLICAL
     Route: 042
     Dates: start: 20130208, end: 20130816
  2. BISOPROLOLO EMIFUMARATO [Concomitant]
     Route: 048
  3. TRIATEC [Concomitant]
     Route: 048
  4. MEDROL [Concomitant]
     Route: 048
  5. TAVOR [Concomitant]
     Route: 048
  6. LYRICA [Concomitant]
     Route: 048
  7. CLEXANE [Concomitant]
     Route: 058

REACTIONS (3)
  - Chest pain [Recovered/Resolved]
  - Hyperhidrosis [Recovered/Resolved]
  - Hypotension [Recovered/Resolved]
